FAERS Safety Report 23397680 (Version 3)
Quarter: 2025Q3

REPORT INFORMATION
  Report Type: Spontaneous
  Country: US (occurrence: US)
  Receive Date: 20240112
  Receipt Date: 20250814
  Transmission Date: 20251020
  Serious: No
  Sender: PFIZER
  Company Number: US-PFIZER INC-202400002611

PATIENT
  Age: 88 Year
  Sex: Female

DRUGS (1)
  1. ESTRING [Suspect]
     Active Substance: ESTRADIOL
     Dosage: UNK, EVERY 3 MONTHS (STRENGTH: 2MG, ALSO REPORTED AS 7.5MCG)
     Route: 067

REACTIONS (2)
  - Therapeutic response unexpected [Unknown]
  - Product prescribing error [Unknown]
